FAERS Safety Report 5726340-1 (Version None)
Quarter: 2008Q2

REPORT INFORMATION
  Report Type: 
  Country: None (occurrence: None)
  Receive Date: 20080502
  Receipt Date: 20080312
  Transmission Date: 20081010
  Serious: No
  Sender: FDA-Public Use
  Company Number: US-BOEHRINGER INGELHEIM GMBH, GERMANY-2008-BP-02576BP

PATIENT
  Sex: Male

DRUGS (10)
  1. AGGRENOX [Suspect]
     Indication: CEREBROVASCULAR ACCIDENT PROPHYLAXIS
     Route: 048
     Dates: start: 20080207
  2. AGGRENOX [Suspect]
     Indication: TRANSIENT ISCHAEMIC ATTACK
  3. LIPITOR [Suspect]
  4. DIOVAN [Concomitant]
  5. SIMVASTATIN [Concomitant]
  6. AZATHIOPRINE [Concomitant]
  7. HUMALOG [Concomitant]
  8. LANTUS [Concomitant]
  9. LEVOTHYROXINE SODIUM [Concomitant]
  10. ORENCIA INFUSIONS [Concomitant]

REACTIONS (1)
  - BLOOD GLUCOSE INCREASED [None]
